FAERS Safety Report 4558277-8 (Version None)
Quarter: 2005Q1

REPORT INFORMATION
  Report Type: 
  Country: None (occurrence: None)
  Receive Date: 20050103
  Receipt Date: 20041011
  Transmission Date: 20050727
  Serious: Yes (Other)
  Sender: FDA-Public Use
  Company Number: 2004UW21181

PATIENT
  Age: 64 Year
  Sex: Female
  Weight: 72.574 kg

DRUGS (3)
  1. CRESTOR [Suspect]
     Indication: HYPERCHOLESTEROLAEMIA
     Dosage: 10 MG PO
     Route: 048
     Dates: start: 20040401
  2. SYNTHROID [Concomitant]
  3. LOTENSIN [Concomitant]

REACTIONS (1)
  - MUSCULOSKELETAL STIFFNESS [None]
